FAERS Safety Report 8927674 (Version 2)
Quarter: 2013Q1

REPORT INFORMATION
  Report Type: Report from Study
  Country: US (occurrence: US)
  Receive Date: 20121127
  Receipt Date: 20130125
  Transmission Date: 20140127
  Serious: Yes (Hospitalization)
  Sender: FDA-Public Use
  Company Number: US-ASTELLAS-2012US011413

PATIENT
  Age: 47 Year
  Sex: Female
  Weight: 93 kg

DRUGS (1)
  1. ERLOTINIB TABLET [Suspect]
     Indication: NON-SMALL CELL LUNG CANCER
     Dosage: 300 MG, UID/QD
     Route: 048
     Dates: start: 201201

REACTIONS (7)
  - Overdose [Unknown]
  - Abdominal distension [Not Recovered/Not Resolved]
  - Breath sounds abnormal [Not Recovered/Not Resolved]
  - Nasopharyngitis [Not Recovered/Not Resolved]
  - Cough [Not Recovered/Not Resolved]
  - Muscle spasms [Unknown]
  - Fungal infection [Not Recovered/Not Resolved]
